FAERS Safety Report 25675308 (Version 1)
Quarter: 2025Q3

REPORT INFORMATION
  Report Type: Spontaneous
  Country: US (occurrence: US)
  Receive Date: 20250813
  Receipt Date: 20250813
  Transmission Date: 20251021
  Serious: Yes (Other)
  Sender: MYLAN
  Company Number: US-MYLANLABS-2025M1068330

PATIENT
  Age: 69 Year
  Sex: Female

DRUGS (4)
  1. DOXORUBICIN [Suspect]
     Active Substance: DOXORUBICIN
     Indication: Solitary fibrous tumour
  2. DOXORUBICIN [Suspect]
     Active Substance: DOXORUBICIN
     Indication: Pleural neoplasm
  3. DACARBAZINE [Suspect]
     Active Substance: DACARBAZINE
     Indication: Solitary fibrous tumour
  4. DACARBAZINE [Suspect]
     Active Substance: DACARBAZINE
     Indication: Pleural neoplasm

REACTIONS (2)
  - Treatment failure [Unknown]
  - Off label use [Unknown]
